FAERS Safety Report 13412543 (Version 3)
Quarter: 2022Q3

REPORT INFORMATION
  Report Type: Spontaneous
  Country: US (occurrence: US)
  Receive Date: 20170406
  Receipt Date: 20220706
  Transmission Date: 20221027
  Serious: No
  Sender: FDA-Public Use
  Company Number: US-JNJFOC-20170308787

PATIENT
  Sex: Male

DRUGS (13)
  1. RISPERDAL [Suspect]
     Active Substance: RISPERIDONE
     Indication: Affective disorder
     Dosage: VARYING DOSES OF UNSPECIFIED, 1 MG AND 2 MG
     Route: 048
     Dates: start: 20070428, end: 20090429
  2. RISPERDAL [Suspect]
     Active Substance: RISPERIDONE
     Indication: Schizoaffective disorder
     Route: 048
     Dates: start: 20090610, end: 20130711
  3. RISPERDAL [Suspect]
     Active Substance: RISPERIDONE
     Indication: Psychotic disorder
     Route: 048
     Dates: end: 20140912
  4. RISPERDAL [Suspect]
     Active Substance: RISPERIDONE
     Indication: Anger
  5. RISPERDAL CONSTA [Suspect]
     Active Substance: RISPERIDONE
     Indication: Anger
     Dosage: VARYING DOSES OF UNSPECIFIED DOSE, 25 IM, 37.5 MG IM AND 50 MG IM
     Route: 030
     Dates: start: 20080730, end: 20101105
  6. RISPERDAL CONSTA [Suspect]
     Active Substance: RISPERIDONE
     Indication: Schizoaffective disorder
  7. RISPERDAL CONSTA [Suspect]
     Active Substance: RISPERIDONE
     Indication: Affective disorder
  8. RISPERDAL CONSTA [Suspect]
     Active Substance: RISPERIDONE
     Indication: Psychotic disorder
  9. INVEGA [Suspect]
     Active Substance: PALIPERIDONE
     Indication: Anger
     Route: 048
     Dates: start: 20130706, end: 20140912
  10. INVEGA [Suspect]
     Active Substance: PALIPERIDONE
     Indication: Schizoaffective disorder
  11. INVEGA [Suspect]
     Active Substance: PALIPERIDONE
     Indication: Affective disorder
  12. INVEGA [Suspect]
     Active Substance: PALIPERIDONE
     Indication: Psychotic disorder
  13. RISPERIDONE [Suspect]
     Active Substance: RISPERIDONE
     Indication: Product used for unknown indication
     Route: 048

REACTIONS (2)
  - Emotional disorder [Unknown]
  - Gynaecomastia [Unknown]
